FAERS Safety Report 24811742 (Version 4)
Quarter: 2025Q3

REPORT INFORMATION
  Report Type: Report from Study
  Country: US (occurrence: US)
  Receive Date: 20250106
  Receipt Date: 20250703
  Transmission Date: 20251020
  Serious: No
  Sender: NOVARTIS
  Company Number: US-002147023-NVSC2025US000735

PATIENT
  Sex: Female
  Weight: 92.53 kg

DRUGS (1)
  1. COSENTYX [Suspect]
     Active Substance: SECUKINUMAB
     Indication: Product used for unknown indication
     Dosage: 150 MG, QMO
     Route: 065
     Dates: start: 202402

REACTIONS (7)
  - Product dose omission issue [Unknown]
  - Fatigue [Unknown]
  - Pruritus [Unknown]
  - Skin exfoliation [Unknown]
  - Pain in extremity [Unknown]
  - Ill-defined disorder [Unknown]
  - Product distribution issue [Unknown]
